FAERS Safety Report 9061434 (Version 1)
Quarter: 2013Q1

REPORT INFORMATION
  Report Type: Spontaneous
  Country: US (occurrence: None)
  Receive Date: 20130211
  Receipt Date: 20130211
  Transmission Date: 20140127
  Serious: Yes (Other)
  Sender: FDA-Public Use
  Company Number: None

PATIENT
  Age: 7 Year
  Sex: Male
  Weight: 25.86 kg

DRUGS (1)
  1. CELEXA [Suspect]
     Indication: ANXIETY DISORDER
     Route: 048
     Dates: start: 20120306, end: 20130104

REACTIONS (3)
  - Drug effect decreased [None]
  - Anxiety [None]
  - Abnormal behaviour [None]
